FAERS Safety Report 5504962-0 (Version None)
Quarter: 2007Q4

REPORT INFORMATION
  Report Type: 
  Country: None (occurrence: None)
  Receive Date: 20071102
  Receipt Date: 20071029
  Transmission Date: 20080405
  Serious: Yes (Death, Hospitalization)
  Sender: FDA-Public Use
  Company Number: US-AVENTIS-200719963GDDC

PATIENT
  Age: 71 Year
  Sex: Female

DRUGS (17)
  1. TAXOTERE [Suspect]
     Indication: NON-SMALL CELL LUNG CANCER
     Route: 042
     Dates: start: 20060103, end: 20060309
  2. LIPITOR [Concomitant]
     Dates: start: 20020602
  3. TENORMIN [Concomitant]
     Indication: HYPERTENSION
     Dates: start: 20020602
  4. NOVO-ZOPICLONE [Concomitant]
     Indication: INSOMNIA
     Dates: start: 20050101
  5. NOVAMILOR [Concomitant]
     Indication: FLUID RETENTION
     Dates: start: 20020101
  6. ATROVENT [Concomitant]
     Dates: start: 20050101
  7. ALBUTEROL [Concomitant]
     Dates: start: 20050101
  8. WELLBUTRIN [Concomitant]
     Indication: DEPRESSION
     Dates: start: 20050101
  9. ASAPHEN [Concomitant]
     Indication: ANTICOAGULANT THERAPY
     Dates: start: 20031017
  10. SENOKOT [Concomitant]
     Indication: CONSTIPATION
     Dates: start: 20060101
  11. MAXERAN [Concomitant]
     Indication: NAUSEA
     Dates: start: 20060127
  12. IMODIUM [Concomitant]
     Dates: start: 20050101
  13. DECADRON [Concomitant]
     Indication: PREMEDICATION
     Dates: start: 20060103
  14. MEGACE [Concomitant]
     Indication: DECREASED APPETITE
     Dates: start: 20060216
  15. CALCIUM WITH VITAMIN D             /00944201/ [Concomitant]
     Dates: start: 20050101
  16. MULTI-VITAMINS [Concomitant]
     Dates: start: 20050101
  17. CODEINE CONTIN [Concomitant]
     Indication: PAIN
     Dates: start: 20050101

REACTIONS (2)
  - ANAEMIA [None]
  - DEHYDRATION [None]
